FAERS Safety Report 18697254 (Version 1)
Quarter: 2021Q1

REPORT INFORMATION
  Report Type: Spontaneous
  Country: US (occurrence: US)
  Receive Date: 20210104
  Receipt Date: 20210104
  Transmission Date: 20210419
  Serious: No
  Sender: FDA-Public Use
  Company Number: US-SA-2021SA000013

PATIENT

DRUGS (1)
  1. DUPIXENT [Suspect]
     Active Substance: DUPILUMAB
     Dosage: 300 MG,FREQUENCY OTHER
     Route: 058
     Dates: start: 202011, end: 202012

REACTIONS (1)
  - Illness [Unknown]

NARRATIVE: CASE EVENT DATE: 20201224
